FAERS Safety Report 8590116-0 (Version None)
Quarter: 2012Q3

REPORT INFORMATION
  Report Type: 
  Country: None (occurrence: None)
  Receive Date: 20120813
  Receipt Date: 20120802
  Transmission Date: 20120928
  Serious: Yes (Other)
  Sender: FDA-Public Use
  Company Number: US-ABBOTT-12P-163-0963975-00

PATIENT
  Sex: Male
  Weight: 3.541 kg

DRUGS (1)
  1. HUMIRA [Suspect]
     Indication: MATERNAL EXPOSURE TIMING UNSPECIFIED
     Route: 064

REACTIONS (6)
  - FOETAL EXPOSURE DURING PREGNANCY [None]
  - INGUINAL HERNIA [None]
  - URINARY RETENTION [None]
  - TORTICOLLIS [None]
  - FOETAL HEART RATE DECELERATION [None]
  - PYELOCALIECTASIS [None]
